FAERS Safety Report 21032737 (Version 1)
Quarter: 2022Q3

REPORT INFORMATION
  Report Type: Spontaneous
  Country: US (occurrence: US)
  Receive Date: 20220701
  Receipt Date: 20220701
  Transmission Date: 20221027
  Serious: Yes (Other)
  Sender: FDA-Public Use
  Company Number: US-JNJFOC-20220655144

PATIENT
  Age: 59 Year
  Sex: Female

DRUGS (1)
  1. TYLENOL EXTRA STRENGTH [Suspect]
     Active Substance: ACETAMINOPHEN
     Indication: Pain
     Dosage: 11 POCKET
     Route: 048
     Dates: start: 202204

REACTIONS (1)
  - Choking [Unknown]

NARRATIVE: CASE EVENT DATE: 20220101
